FAERS Safety Report 9753616 (Version 1)
Quarter: 2013Q4

REPORT INFORMATION
  Report Type: Spontaneous
  Country: US (occurrence: None)
  Receive Date: 20131211
  Receipt Date: 20131211
  Transmission Date: 20140711
  Serious: Yes (Hospitalization)
  Sender: FDA-Public Use
  Company Number: 2013CT000114

PATIENT
  Age: 38 Year
  Sex: Female

DRUGS (1)
  1. KORLYM [Suspect]
     Indication: PITUITARY-DEPENDENT CUSHING^S SYNDROME
     Route: 048
     Dates: start: 201310, end: 201311

REACTIONS (4)
  - Cardiac failure congestive [None]
  - Hypertension [None]
  - Hypokalaemia [None]
  - Oedema [None]
